FAERS Safety Report 4472243-2 (Version None)
Quarter: 2004Q4

REPORT INFORMATION
  Report Type: 
  Country: None (occurrence: None)
  Receive Date: 20041008
  Receipt Date: 20040930
  Transmission Date: 20050328
  Serious: Yes (Hospitalization)
  Sender: FDA-Public Use
  Company Number: 163537

PATIENT
  Age: 53 Year
  Sex: Female

DRUGS (11)
  1. AVONEX [Suspect]
     Indication: MULTIPLE SCLEROSIS
     Dosage: 30 MCG QW IM
     Route: 030
     Dates: start: 20010224, end: 20020423
  2. ATENOLOL [Concomitant]
  3. TRAZODONE HCL [Concomitant]
  4. WELLBUTRIN [Concomitant]
  5. MAXZIDE [Concomitant]
  6. BACLOFEN [Concomitant]
  7. DICLOFENAC [Concomitant]
  8. PREMPHASE 14/14 [Concomitant]
  9. ASPIRIN [Concomitant]
  10. PERCOCET [Concomitant]
  11. IBUPROFEN [Concomitant]

REACTIONS (12)
  - ADRENAL ADENOMA [None]
  - ALPHA-1 ANTI-TRYPSIN INCREASED [None]
  - ANTINUCLEAR ANTIBODY POSITIVE [None]
  - HEPATIC ENCEPHALOPATHY [None]
  - HEPATIC FAILURE [None]
  - HEPATIC STEATOSIS [None]
  - LETHARGY [None]
  - METABOLIC ENCEPHALOPATHY [None]
  - NEOPLASM MALIGNANT [None]
  - PROTHROMBIN TIME PROLONGED [None]
  - SERUM FERRITIN INCREASED [None]
  - ULTRASOUND LIVER ABNORMAL [None]
